FAERS Safety Report 9407508 (Version 2)
Quarter: 2013Q4

REPORT INFORMATION
  Report Type: Spontaneous
  Country: JP (occurrence: JP)
  Receive Date: 20130718
  Receipt Date: 20131231
  Transmission Date: 20140711
  Serious: Yes (Hospitalization)
  Sender: FDA-Public Use
  Company Number: PHHY2013JP074502

PATIENT
  Age: 63 Year
  Sex: Female

DRUGS (1)
  1. ZOMETA [Suspect]
     Indication: METASTASES TO BONE
     Route: 041

REACTIONS (6)
  - Femur fracture [Unknown]
  - Bone pain [Unknown]
  - Injury [Unknown]
  - Bone disorder [Unknown]
  - Impaired healing [Unknown]
  - Pain [Unknown]
